FAERS Safety Report 5103257-7 (Version None)
Quarter: 2006Q3

REPORT INFORMATION
  Report Type: 
  Country: None (occurrence: None)
  Receive Date: 20060908
  Receipt Date: 20060831
  Transmission Date: 20061208
  Serious: Yes (Disabling, Other)
  Sender: FDA-Public Use
  Company Number: HQWYE236701SEP06

PATIENT
  Age: 83 Year
  Sex: Male

DRUGS (5)
  1. CORDARONE [Suspect]
     Indication: ATRIAL FIBRILLATION
     Dosage: 200 MG EVERY OTHER DAY AND 100 MG EVERY OTHER DAY ORAL
     Route: 048
     Dates: start: 20030915, end: 20060601
  2. SELOKEN ZOC (METOPROLOL SUCCINATE) [Concomitant]
  3. PLAVIX [Concomitant]
  4. THYROXIN (LEVOTHYROXINE SODIUM) [Concomitant]
  5. CITALOPRAM HYDROBROMIDE [Concomitant]

REACTIONS (11)
  - ABDOMINAL PAIN UPPER [None]
  - ALANINE AMINOTRANSFERASE INCREASED [None]
  - BLOOD ALKALINE PHOSPHATASE INCREASED [None]
  - BLOOD BILIRUBIN INCREASED [None]
  - CONFUSIONAL STATE [None]
  - DIARRHOEA [None]
  - GAMMA-GLUTAMYLTRANSFERASE INCREASED [None]
  - GENERAL PHYSICAL HEALTH DETERIORATION [None]
  - SKIN DISCOLOURATION [None]
  - THYROXINE FREE INCREASED [None]
  - VOMITING [None]
